FAERS Safety Report 8100071-5 (Version None)
Quarter: 2012Q1

REPORT INFORMATION
  Report Type: 
  Country: None (occurrence: None)
  Receive Date: 20120129
  Receipt Date: 20111101
  Transmission Date: 20120608
  Serious: No
  Sender: FDA-Public Use
  Company Number: US-ABBOTT-11P-163-0871002-00

PATIENT
  Sex: Female
  Weight: 83.99 kg

DRUGS (5)
  1. HUMIRA [Suspect]
     Indication: RHEUMATOID ARTHRITIS
     Dates: start: 20111027
  2. GABAPENTIN [Concomitant]
     Indication: FIBROMYALGIA
  3. METHOTREXATE [Concomitant]
     Indication: RHEUMATOID ARTHRITIS
     Dosage: INJECTABLE
  4. HUMIRA [Suspect]
     Dates: start: 20060101
  5. HUMIRA [Suspect]

REACTIONS (2)
  - UPPER RESPIRATORY TRACT INFECTION [None]
  - DRUG EFFECT DECREASED [None]
